FAERS Safety Report 8709787 (Version 2)
Quarter: 2013Q4

REPORT INFORMATION
  Report Type: Spontaneous
  Country: US (occurrence: US)
  Receive Date: 20120806
  Receipt Date: 20131101
  Transmission Date: 20140711
  Serious: No
  Sender: FDA-Public Use
  Company Number: US-009507513-1207USA011322

PATIENT
  Sex: Male

DRUGS (9)
  1. ZOCOR [Suspect]
     Dosage: 20 MG, QD
  2. HYDROCHLOROTHIAZIDE (+) LOSARTAN POTASSIUM [Suspect]
     Dosage: 100 MG, QD
  3. TESTOSTERONE [Suspect]
     Dosage: 5 G, QD
     Route: 062
  4. TESTOSTERONE [Suspect]
     Dosage: 10 G, QD
     Route: 062
  5. GLUCOSAMINE [Concomitant]
  6. ASPIRIN [Concomitant]
     Dosage: 81 MG, QD
  7. ZOLPIDEM TARTRATE [Concomitant]
     Dosage: 10 MG, QD
  8. OXYCODONE [Concomitant]
     Dosage: 30 MG, QD
  9. CELECOXIB [Concomitant]
     Dosage: 20 MG, QD

REACTIONS (4)
  - Blood pressure increased [Unknown]
  - Blood testosterone decreased [Unknown]
  - Headache [Unknown]
  - Heart rate increased [Unknown]
